FAERS Safety Report 15742204 (Version 2)
Quarter: 2018Q4

REPORT INFORMATION
  Report Type: Spontaneous
  Country: US (occurrence: US)
  Receive Date: 20181219
  Receipt Date: 20181228
  Transmission Date: 20190205
  Serious: No
  Sender: FDA-Public Use
  Company Number: US-009507513-1811USA011513

PATIENT
  Age: 47 Year
  Sex: Female

DRUGS (3)
  1. NASONEX [Suspect]
     Active Substance: MOMETASONE FUROATE
     Indication: PROPHYLAXIS
     Dosage: 2 SPRAYS IN EACH NOSTRIL ONE TIME DAILY
     Route: 045
     Dates: start: 200711
  2. MUCINEX [Concomitant]
     Active Substance: GUAIFENESIN
  3. ANTIMICROBIAL (UNSPECIFIED) [Concomitant]
     Active Substance: UNSPECIFIED INGREDIENT

REACTIONS (9)
  - Product dose omission [Unknown]
  - Incorrect dose administered [Unknown]
  - Nasal congestion [Recovering/Resolving]
  - Drug ineffective [Unknown]
  - Paraesthesia [Unknown]
  - Rhinalgia [Unknown]
  - Product quality issue [Unknown]
  - Product use in unapproved indication [Unknown]
  - Dyspnoea [Recovering/Resolving]

NARRATIVE: CASE EVENT DATE: 200711
